APPROVED DRUG PRODUCT: LEVOFLOXACIN
Active Ingredient: LEVOFLOXACIN
Strength: 250MG/10ML
Dosage Form/Route: SOLUTION;ORAL
Application: A091678 | Product #001 | TE Code: AA
Applicant: NOVITIUM PHARMA LLC
Approved: Jun 20, 2011 | RLD: No | RS: Yes | Type: RX